FAERS Safety Report 10600574 (Version 1)
Quarter: 2014Q4

REPORT INFORMATION
  Report Type: Spontaneous
  Country: DE (occurrence: DE)
  Receive Date: 20141124
  Receipt Date: 20141124
  Transmission Date: 20150529
  Serious: Yes (Other)
  Sender: FDA-Public Use
  Company Number: DE-AUROBINDO-AUR-APL-2014-12099

PATIENT
  Age: 0 Day
  Sex: Female
  Weight: 2.78 kg

DRUGS (13)
  1. ACETYLSALICYLIC ACID [Concomitant]
     Active Substance: ASPIRIN
     Indication: PROPHYLAXIS OF ABORTION
     Dosage: 100 MG, ONCE A DAY
     Route: 064
     Dates: start: 20131111, end: 20140815
  2. FSME-IMMUN [Concomitant]
     Indication: IMMUNISATION
     Dosage: 3 RD VACCINE, UNK
     Route: 064
     Dates: start: 20140414, end: 20140414
  3. LAMOTRIGINE. [Suspect]
     Active Substance: LAMOTRIGINE
     Indication: EPILEPSY
     Dosage: 150 MG, UNK
     Route: 064
     Dates: start: 20131111, end: 20140815
  4. CALCIUM [Concomitant]
     Active Substance: CALCIUM
     Indication: CALCIUM DEFICIENCY
     Dosage: 1000 MG, ONCE A DAY
     Route: 064
     Dates: start: 20131118, end: 20140815
  5. DEKRISTOL [Concomitant]
     Active Substance: CHOLECALCIFEROL
     Indication: VITAMIN D DEFICIENCY
     Dosage: 20000 IU, EVERY WEEK
     Route: 064
     Dates: start: 20131118, end: 20140815
  6. LAMOTRIGINE. [Suspect]
     Active Substance: LAMOTRIGINE
     Dosage: 175 MG, UNK
     Route: 064
     Dates: start: 20131111, end: 20140815
  7. SUMATRIPTAN. [Concomitant]
     Active Substance: SUMATRIPTAN
     Indication: MIGRAINE
     Dosage: TWICE DURING 1ST TRIMESTER AND 3RD TRIMESTER, UNK
     Route: 064
  8. ENGERIX B [Concomitant]
     Indication: IMMUNISATION
     Dosage: UNK
     Route: 064
     Dates: start: 20131127, end: 20131127
  9. FRAXIPARIN                         /00889603/ [Concomitant]
     Indication: PROPHYLAXIS OF ABORTION
     Dosage: 2850 IU, ONCE A DAY
     Route: 064
     Dates: start: 20131201, end: 20140812
  10. CITALOPRAM [Suspect]
     Active Substance: CITALOPRAM HYDROBROMIDE
     Indication: DEPRESSION
     Dosage: 30 MG, ONCE A DAY
     Route: 064
     Dates: start: 20131118, end: 20140815
  11. PROGESTERON [Concomitant]
     Indication: PROPHYLAXIS OF ABORTION
     Dosage: 200 MG, ONCE A DAY
     Route: 064
     Dates: start: 20131118, end: 20140815
  12. FOLSAN [Concomitant]
     Active Substance: FOLIC ACID
     Indication: PROPHYLAXIS OF NEURAL TUBE DEFECT
     Dosage: 5 MG, ONCE A DAY
     Route: 064
     Dates: start: 20131118, end: 20140815
  13. LEVOTHYROXINE SODIUM. [Concomitant]
     Active Substance: LEVOTHYROXINE SODIUM
     Indication: HYPOTHYROIDISM
     Dosage: 250 ?G, ONCE A DAY
     Route: 064
     Dates: start: 20131111, end: 20140815

REACTIONS (3)
  - Agitation neonatal [Recovered/Resolved]
  - Respiratory disorder neonatal [Recovered/Resolved]
  - Foetal exposure during pregnancy [Unknown]

NARRATIVE: CASE EVENT DATE: 20140815
